FAERS Safety Report 18928786 (Version 2)
Quarter: 2021Q2

REPORT INFORMATION
  Report Type: Spontaneous
  Country: US (occurrence: US)
  Receive Date: 20210223
  Receipt Date: 20210430
  Transmission Date: 20210717
  Serious: No
  Sender: FDA-Public Use
  Company Number: US-PFIZER INC-2021165712

PATIENT
  Age: 14 Year
  Sex: Male

DRUGS (1)
  1. GENOTROPIN [Suspect]
     Active Substance: SOMATROPIN
     Dosage: 2.8 MG (6 DAYS PER WEEK)
     Dates: start: 202011

REACTIONS (3)
  - Device leakage [Unknown]
  - Device use issue [Unknown]
  - Drug dose omission by device [Unknown]
